FAERS Safety Report 9027771 (Version 1)
Quarter: 2013Q1

REPORT INFORMATION
  Report Type: Spontaneous
  Country: ES (occurrence: ES)
  Receive Date: 20130124
  Receipt Date: 20130124
  Transmission Date: 20140127
  Serious: Yes (Other)
  Sender: FDA-Public Use
  Company Number: ES-JNJFOC-20130108700

PATIENT
  Age: 68 Year
  Sex: Female

DRUGS (1)
  1. DOXORUBICIN HYDROCHLORIDE (CAELYX) [Suspect]
     Indication: PRODUCT USED FOR UNKNOWN INDICATION
     Route: 042
     Dates: start: 20121226, end: 20121226

REACTIONS (3)
  - Chest pain [Recovering/Resolving]
  - Anaphylactic reaction [Recovering/Resolving]
  - Acute respiratory failure [Recovering/Resolving]
